FAERS Safety Report 15255870 (Version 1)
Quarter: 2018Q3

REPORT INFORMATION
  Report Type: Spontaneous
  Country: US (occurrence: US)
  Receive Date: 20180718
  Receipt Date: 20180718
  Transmission Date: 20181010
  Serious: No
  Sender: FDA-Public Use
  Company Number: None

PATIENT
  Age: 70 Year
  Sex: Female

DRUGS (10)
  1. METHOTREXATE. [Concomitant]
     Active Substance: METHOTREXATE
  2. METFORMIN [Concomitant]
     Active Substance: METFORMIN HYDROCHLORIDE
  3. FLUOXETINE [Concomitant]
     Active Substance: FLUOXETINE HYDROCHLORIDE
  4. SPIRONOLACT [Concomitant]
     Active Substance: SPIRONOLACTONE
  5. VITAMIN D [Concomitant]
     Active Substance: CHOLECALCIFEROL
  6. LOSARTAN. [Concomitant]
     Active Substance: LOSARTAN
  7. NORTHERA [Suspect]
     Active Substance: DROXIDOPA
     Indication: ORTHOSTATIC HYPERTENSION
     Route: 048
     Dates: start: 20180223
  8. ATACAND [Concomitant]
     Active Substance: CANDESARTAN CILEXETIL
  9. FOLIC ACID. [Concomitant]
     Active Substance: FOLIC ACID
  10. METHYPRED [Concomitant]

REACTIONS (1)
  - Blood pressure abnormal [None]

NARRATIVE: CASE EVENT DATE: 20180717
